FAERS Safety Report 4600474-7 (Version None)
Quarter: 2005Q1

REPORT INFORMATION
  Report Type: 
  Country: None (occurrence: None)
  Receive Date: 20050304
  Receipt Date: 20021111
  Transmission Date: 20050727
  Serious: Yes (Death)
  Sender: FDA-Public Use
  Company Number: 2002133129US

PATIENT
  Age: 22 Year

DRUGS (2)
  1. DIPHENHYDRAMINE (DIPHENHDYRAMINE) [Suspect]
     Dosage: ORAL
     Route: 048
  2. DIAMORPHINE (DIAMORPHINE) [Suspect]
     Dosage: INTRAVENOUS
     Route: 042

REACTIONS (1)
  - DEATH [None]
